FAERS Safety Report 8000400-7 (Version None)
Quarter: 2011Q4

REPORT INFORMATION
  Report Type: 
  Country: None (occurrence: None)
  Receive Date: 20111222
  Receipt Date: 20111006
  Transmission Date: 20120403
  Serious: Yes (Other)
  Sender: FDA-Public Use
  Company Number: US-BRISTOL-MYERS SQUIBB COMPANY-14921571

PATIENT
  Age: 64 Year
  Sex: Female
  Weight: 66 kg

DRUGS (5)
  1. LIPITOR [Suspect]
     Indication: BLOOD CHOLESTEROL INCREASED
     Dosage: FILMCOATED TABLET DOSE INCREASED TO 40MG STARTED AT 2004 OR05
  2. FISH OIL [Concomitant]
  3. VITAMIN B COMPLEX CAP [Concomitant]
  4. PRAVACHOL [Suspect]
     Indication: BLOOD CHOLESTEROL INCREASED
  5. ZOCOR [Suspect]
     Indication: BLOOD CHOLESTEROL INCREASED

REACTIONS (15)
  - PAINFUL RESPIRATION [None]
  - HYPOAESTHESIA [None]
  - ORAL DISCOMFORT [None]
  - OROPHARYNGEAL PAIN [None]
  - GLOSSODYNIA [None]
  - DIARRHOEA [None]
  - HYPERSENSITIVITY [None]
  - CHEILITIS [None]
  - GASTRITIS [None]
  - HEADACHE [None]
  - PARAESTHESIA [None]
  - EAR DISCOMFORT [None]
  - ARTHRALGIA [None]
  - LIP PAIN [None]
  - FATIGUE [None]
